FAERS Safety Report 8425417-X (Version None)
Quarter: 2012Q2

REPORT INFORMATION
  Report Type: 
  Country: None (occurrence: None)
  Receive Date: 20120605
  Receipt Date: 20120605
  Transmission Date: 20120825
  Serious: Yes (Hospitalization)
  Sender: FDA-Public Use
  Company Number: None

PATIENT
  Sex: Female

DRUGS (3)
  1. RIBAVIRIN [Suspect]
     Dosage: 1000MG DAILY PO
     Route: 048
     Dates: start: 20120405, end: 20120510
  2. INCIVEK [Concomitant]
  3. PEGASYS [Suspect]
     Dosage: 180MCG QW SQ
     Route: 058
     Dates: start: 20120405, end: 20120510

REACTIONS (1)
  - RENAL FAILURE [None]
